FAERS Safety Report 11330067 (Version 4)
Quarter: 2019Q4

REPORT INFORMATION
  Report Type: Report from Study
  Country: GB (occurrence: GB)
  Receive Date: 20150803
  Receipt Date: 20191223
  Transmission Date: 20200122
  Serious: Yes (Hospitalization)
  Sender: FDA-Public Use
  Company Number: GB-ROCHE-1554954

PATIENT
  Age: 67 Year
  Sex: Female
  Weight: 63.9 kg

DRUGS (20)
  1. FLAMAZINE [Concomitant]
     Active Substance: SILVER SULFADIAZINE
     Route: 065
     Dates: start: 20150205, end: 20150219
  2. EPIRUBICIN [Suspect]
     Active Substance: EPIRUBICIN
     Indication: HER-2 POSITIVE BREAST CANCER
     Route: 065
     Dates: start: 20140819
  3. DOCETAXEL. [Suspect]
     Active Substance: DOCETAXEL
     Indication: HER-2 POSITIVE BREAST CANCER
     Dosage: MOST RECENT DOSE PRIOR TO SAE WAS ON: 02/DEC/2014
     Route: 042
     Dates: start: 20141021
  4. LENOGRASTIM [Concomitant]
     Active Substance: LENOGRASTIM
     Indication: NEUTROPENIA
     Route: 065
     Dates: start: 20140820
  5. CO-AMOXICLAV [AMOXICILLIN;CLAVULANATE POTASSIUM] [Concomitant]
     Active Substance: AMOXICILLIN\CLAVULANATE POTASSIUM
     Indication: UPPER RESPIRATORY TRACT INFECTION
     Route: 065
     Dates: start: 20150227, end: 20150306
  6. CYCLOPHOSPHAMIDE. [Suspect]
     Active Substance: CYCLOPHOSPHAMIDE
     Indication: HER-2 POSITIVE BREAST CANCER
     Route: 065
     Dates: start: 20140819
  7. COTRIMOXAZOLE [Concomitant]
     Active Substance: SULFAMETHOXAZOLE\TRIMETHOPRIM
     Route: 065
     Dates: start: 20140819
  8. TRASTUZUMAB. [Suspect]
     Active Substance: TRASTUZUMAB
     Dosage: MAINTENENCE DOSE?RECENT DOSE PRIOR TO SECOND OCCURENCE OF LEFT HIP DISLOCATION : 03/JUL//2015?RECENT
     Route: 042
     Dates: start: 20141111
  9. IBUPROFEN. [Concomitant]
     Active Substance: IBUPROFEN
     Indication: INFLAMMATION
     Route: 065
     Dates: start: 20140819
  10. ONDANSETRON [Concomitant]
     Active Substance: ONDANSETRON
     Indication: MALAISE
     Route: 065
     Dates: start: 20140819
  11. PERTUZUMAB. [Suspect]
     Active Substance: PERTUZUMAB
     Indication: HER-2 POSITIVE BREAST CANCER
     Dosage: LOADING DOSE
     Route: 042
     Dates: start: 20141021, end: 20141021
  12. DOMPERIDONE [Concomitant]
     Active Substance: DOMPERIDONE
     Indication: MALAISE
     Route: 065
     Dates: end: 20140819
  13. PYRIDOXINE [Concomitant]
     Active Substance: PYRIDOXINE
     Indication: NEUROPATHY PERIPHERAL
     Route: 065
     Dates: start: 20141222
  14. LAXIDO ORANGE [Concomitant]
     Indication: CONSTIPATION
     Route: 065
     Dates: start: 20140116
  15. MOVELAT RELIEF [Concomitant]
     Indication: PAIN IN EXTREMITY
     Route: 065
     Dates: start: 20141110, end: 2014
  16. PERTUZUMAB. [Suspect]
     Active Substance: PERTUZUMAB
     Dosage: MAINTENENCE DOSE?RECENT DOSE PRIOR TO SECOND OCCURENCE OF LEFT HIP DISLOCATION : 03/JUL//2015?RECENT
     Route: 042
     Dates: start: 20141111
  17. TRASTUZUMAB. [Suspect]
     Active Substance: TRASTUZUMAB
     Indication: HER-2 POSITIVE BREAST CANCER
     Dosage: LOADING DOSE
     Route: 042
     Dates: start: 20141021, end: 20141021
  18. 5-FLUOROURACIL [FLUOROURACIL] [Suspect]
     Active Substance: FLUOROURACIL
     Indication: HER-2 POSITIVE BREAST CANCER
     Route: 065
     Dates: start: 20140819
  19. DEXAMETHASONE. [Concomitant]
     Active Substance: DEXAMETHASONE
     Indication: VOMITING
     Route: 065
     Dates: start: 20140819
  20. ANTIBIOTICS [Concomitant]
     Active Substance: UNSPECIFIED INGREDIENT
     Indication: COUGH
     Route: 065
     Dates: start: 20150702, end: 20150813

REACTIONS (2)
  - Joint dislocation [Recovered/Resolved with Sequelae]
  - Joint dislocation [Recovered/Resolved]

NARRATIVE: CASE EVENT DATE: 20150308
